FAERS Safety Report 25847972 (Version 1)
Quarter: 2025Q3

REPORT INFORMATION
  Report Type: Spontaneous
  Country: US (occurrence: US)
  Receive Date: 20250925
  Receipt Date: 20250925
  Transmission Date: 20251020
  Serious: No
  Sender: MYLAN
  Company Number: US-MYLANLABS-2025M1079580

PATIENT
  Age: 6 Year
  Sex: Male
  Weight: 20.87 kg

DRUGS (1)
  1. METHYLPHENIDATE [Suspect]
     Active Substance: METHYLPHENIDATE
     Indication: Attention deficit hyperactivity disorder
     Dosage: 10 MILLIGRAM, QD (ONCE DAILY FOR NINE HOURS)
     Dates: start: 202507

REACTIONS (7)
  - Application site erythema [Not Recovered/Not Resolved]
  - Application site pruritus [Recovering/Resolving]
  - Application site discolouration [Recovering/Resolving]
  - Application site rash [Recovering/Resolving]
  - Application site swelling [Recovering/Resolving]
  - Application site irritation [Recovering/Resolving]
  - Application site dryness [Recovering/Resolving]

NARRATIVE: CASE EVENT DATE: 20250801
